FAERS Safety Report 13462246 (Version 1)
Quarter: 2017Q2

REPORT INFORMATION
  Report Type: Spontaneous
  Country: US (occurrence: US)
  Receive Date: 20170420
  Receipt Date: 20170420
  Transmission Date: 20170830
  Serious: No
  Sender: FDA-Public Use
  Company Number: US-BAUSCH-BL-2016-006122

PATIENT
  Age: 74 Year
  Sex: Female
  Weight: 63.56 kg

DRUGS (1)
  1. ARESTIN [Suspect]
     Active Substance: MINOCYCLINE HYDROCHLORIDE
     Indication: PRODUCT USED FOR UNKNOWN INDICATION
     Dosage: APPLIED TO A POCKET OF 5MM ON THE MEDIAL FACIAL OF 21
     Route: 048
     Dates: start: 20151026, end: 20151026

REACTIONS (2)
  - Pain [Recovering/Resolving]
  - Gingival pain [Unknown]

NARRATIVE: CASE EVENT DATE: 20151106
